FAERS Safety Report 17263846 (Version 1)
Quarter: 2020Q1

REPORT INFORMATION
  Report Type: Spontaneous
  Country: US (occurrence: US)
  Receive Date: 20200113
  Receipt Date: 20200113
  Transmission Date: 20200409
  Serious: Yes (Other)
  Sender: FDA-Public Use
  Company Number: US-TAKEDA-2020TUS001781

PATIENT
  Age: 72 Year
  Sex: Male

DRUGS (3)
  1. NINLARO [Suspect]
     Active Substance: IXAZOMIB CITRATE
     Indication: AMYLOIDOSIS
     Dosage: 2.3 MILLIGRAM
     Route: 065
     Dates: start: 20190304, end: 20190321
  2. VENETOCLAX. [Suspect]
     Active Substance: VENETOCLAX
     Indication: AMYLOIDOSIS
     Dosage: 400 MILLIGRAM, QD
     Route: 065
     Dates: start: 20190304, end: 20190321
  3. DEXAMETHASONE. [Suspect]
     Active Substance: DEXAMETHASONE
     Indication: AMYLOIDOSIS
     Dosage: 8 MILLIGRAM
     Route: 065
     Dates: start: 20190304, end: 20190321

REACTIONS (2)
  - Amyloidosis [Unknown]
  - Off label use [Unknown]
